FAERS Safety Report 4668248-9 (Version None)
Quarter: 2005Q2

REPORT INFORMATION
  Report Type: 
  Country: None (occurrence: None)
  Receive Date: 20050523
  Receipt Date: 20050308
  Transmission Date: 20051028
  Serious: Yes (Disabling, Other)
  Sender: FDA-Public Use
  Company Number: PHEH2005US02899

PATIENT
  Age: 76 Year
  Sex: Female

DRUGS (8)
  1. PAMIDRONATE DISODIUM [Suspect]
     Indication: METASTASES TO BONE
     Dosage: 90 MG, QMO
     Dates: start: 20001001, end: 20041018
  2. TAMOXIFEN [Concomitant]
  3. ANASTROZOLE [Concomitant]
  4. FASLODEX [Concomitant]
  5. TRASTUZUMAB [Concomitant]
  6. VINORELBINE TARTRATE [Concomitant]
  7. XELODA [Concomitant]
  8. GEMZAR [Concomitant]

REACTIONS (6)
  - BACTERIAL INFECTION [None]
  - IMPAIRED HEALING [None]
  - OSTEONECROSIS [None]
  - TOOTH ABSCESS [None]
  - TOOTH EXTRACTION [None]
  - WOUND DEBRIDEMENT [None]
